FAERS Safety Report 4819004-X (Version None)
Quarter: 2005Q4

REPORT INFORMATION
  Report Type: 
  Country: None (occurrence: None)
  Receive Date: 20051101
  Receipt Date: 20051101
  Transmission Date: 20060501
  Serious: Yes (Other)
  Sender: FDA-Public Use
  Company Number: None

PATIENT
  Sex: Female
  Weight: 51.7101 kg

DRUGS (1)
  1. LEVOTHYROXINE (GENERIC) [Suspect]
     Indication: THYROID GLAND CANCER
     Dosage: 112 MCG
     Dates: start: 20050228

REACTIONS (1)
  - PHARMACEUTICAL PRODUCT COMPLAINT [None]
